FAERS Safety Report 25484007 (Version 1)
Quarter: 2025Q2

REPORT INFORMATION
  Report Type: Spontaneous
  Country: CN (occurrence: CN)
  Receive Date: 20250626
  Receipt Date: 20250626
  Transmission Date: 20250716
  Serious: Yes (Life-Threatening, Disabling, Other)
  Sender: BAYER HEALTHCARE PHARMACEUTICALS INC.
  Company Number: CN-BAYER-2025A083619

PATIENT
  Age: 53 Year
  Sex: Male
  Weight: 100 kg

DRUGS (1)
  1. AVELOX [Suspect]
     Active Substance: MOXIFLOXACIN HYDROCHLORIDE
     Indication: Pneumonia
     Dosage: 0.4 G, QD
     Route: 041
     Dates: start: 20250202, end: 20250202

REACTIONS (19)
  - Hypersensitivity [Recovering/Resolving]
  - Oedema peripheral [Not Recovered/Not Resolved]
  - Skin ulcer haemorrhage [Not Recovered/Not Resolved]
  - Wound secretion [Not Recovered/Not Resolved]
  - Heart rate increased [None]
  - Pyrexia [Recovered/Resolved]
  - Pruritus [None]
  - Rash [Not Recovered/Not Resolved]
  - Chest discomfort [Recovering/Resolving]
  - Tachypnoea [None]
  - Breath sounds abnormal [None]
  - Wheezing [None]
  - Rales [None]
  - Depressed mood [Recovering/Resolving]
  - Skin discolouration [None]
  - Haemoptysis [Recovered/Resolved]
  - Contraindicated product prescribed [None]
  - Contraindicated product administered [None]
  - Labelled drug-disease interaction issue [None]

NARRATIVE: CASE EVENT DATE: 20250201
